FAERS Safety Report 11230661 (Version 4)
Quarter: 2016Q1

REPORT INFORMATION
  Report Type: Spontaneous
  Country: US (occurrence: US)
  Receive Date: 20150701
  Receipt Date: 20160112
  Transmission Date: 20160525
  Serious: No
  Sender: FDA-Public Use
  Company Number: US-PFIZER INC-2015215418

PATIENT
  Age: 50 Year
  Sex: Female
  Weight: 81.1 kg

DRUGS (23)
  1. OMEPRAZOLE. [Concomitant]
     Active Substance: OMEPRAZOLE
     Dosage: 40 MG, 2X/DAY 30 MINS BEFORE BREAKFAST AND DINNER
     Route: 048
     Dates: start: 20150714
  2. ESTRADIOL. [Concomitant]
     Active Substance: ESTRADIOL
     Dosage: 1 MG, DAILY
     Dates: start: 20150303
  3. MIDODRINE [Concomitant]
     Active Substance: MIDODRINE
     Dosage: 10 MG, 3X/DAY
     Route: 048
     Dates: start: 20150604
  4. VITAMIN C [Concomitant]
     Active Substance: ASCORBIC ACID
     Dosage: 1000 MG, 1X/DAY
     Route: 048
     Dates: start: 20150303
  5. CETIRIZINE [Concomitant]
     Active Substance: CETIRIZINE HYDROCHLORIDE
     Dosage: 10 MG, 1X/DAY
     Route: 048
     Dates: start: 20150303
  6. NITROSTAT [Concomitant]
     Active Substance: NITROGLYCERIN
     Indication: PAIN
  7. PILOCARPINE. [Concomitant]
     Active Substance: PILOCARPINE
     Dosage: 5 MG, 3X/DAY
     Route: 048
     Dates: start: 20150303
  8. SYNTHROID [Concomitant]
     Active Substance: LEVOTHYROXINE SODIUM
     Dosage: 125 UG, 1X/DAY
     Route: 048
     Dates: start: 20150303
  9. CARISOPRODOL. [Concomitant]
     Active Substance: CARISOPRODOL
     Dosage: 350 MG TABLET AT 1 TABLET AM AND 2 TABLETS AT BEDTIME EVERY DAY
     Route: 048
     Dates: start: 20150526
  10. MULTIVITAMINS [Concomitant]
     Active Substance: VITAMINS
     Dosage: 1 DF, DAILY
     Route: 048
     Dates: start: 20150303
  11. NITROSTAT [Concomitant]
     Active Substance: NITROGLYCERIN
     Indication: MYOCARDIAL INFARCTION
     Dosage: 1 TABLET AT 1ST SIGN OF ATTACK; MAY REPEAT EVERY 5 MIN UNTIL RELIEF
     Route: 060
     Dates: start: 20150303
  12. FEROSAL [Concomitant]
     Dosage: 325 MG (65 MG IRON), 1X/DAY
     Route: 048
     Dates: start: 20150702
  13. HYDROXYCHLOROQUINE [Concomitant]
     Active Substance: HYDROXYCHLOROQUINE
     Dosage: 200 MG TABLET AT 2 TABLETS AM AND 1 TABLET PM, 2X/DAY
     Route: 048
     Dates: start: 20150303
  14. SOMA [Concomitant]
     Active Substance: CARISOPRODOL
     Indication: NEURALGIA
     Dosage: UNK, 2X/DAY (L IN AM AND 2 IN PM)
  15. SALAGEN [Concomitant]
     Active Substance: PILOCARPINE HYDROCHLORIDE
     Indication: SJOGREN^S SYNDROME
     Dosage: UNK
  16. IMITREX [Concomitant]
     Active Substance: SUMATRIPTAN SUCCINATE
     Indication: HEADACHE
     Dosage: (6 MG/0.5 ML, INJECT 0.5 MILLILITER ONCE;DO NOT EXCEED 24 HOURS)
     Route: 058
     Dates: start: 20150303
  17. OMEPRAZOLE. [Concomitant]
     Active Substance: OMEPRAZOLE
     Dosage: 40 MG, 2X/DAY BEFORE A MEAL
     Route: 048
     Dates: start: 20150727
  18. LYRICA [Suspect]
     Active Substance: PREGABALIN
     Indication: SJOGREN^S SYNDROME
     Dosage: 100 MG, 4X/DAY
     Route: 048
     Dates: start: 201105
  19. LYRICA [Suspect]
     Active Substance: PREGABALIN
     Indication: NEURALGIA
     Dosage: 200 MG, 1X/DAY PM
     Route: 048
     Dates: start: 20150727
  20. PLAQUENIL [Concomitant]
     Active Substance: HYDROXYCHLOROQUINE SULFATE
     Indication: SJOGREN^S SYNDROME
     Dosage: UNK
  21. FISH OIL-VIT D3 [Concomitant]
     Dosage: 1 DF (360 MG-1200 MG-1000 UNIT CAPSULE), DAILY
     Route: 048
     Dates: start: 20150303
  22. FLUOXETINE [Concomitant]
     Active Substance: FLUOXETINE HYDROCHLORIDE
     Dosage: 40 MG, 1X/DAY MORNING
     Route: 048
     Dates: start: 20150303
  23. MAGNESIUM OXIDE. [Concomitant]
     Active Substance: MAGNESIUM OXIDE
     Dosage: 400 MG, 1X/DAY
     Route: 048
     Dates: start: 20150303

REACTIONS (18)
  - Orthostatic hypotension [Unknown]
  - Chest pain [Unknown]
  - Neck pain [Unknown]
  - Swelling [Unknown]
  - Constipation [Unknown]
  - Oropharyngeal pain [Unknown]
  - Asthma [Unknown]
  - Dyspepsia [Unknown]
  - Insomnia [Unknown]
  - Neuralgia [Recovered/Resolved]
  - Arthralgia [Unknown]
  - Hot flush [Not Recovered/Not Resolved]
  - Body mass index increased [Unknown]
  - Pain [Unknown]
  - Headache [Recovering/Resolving]
  - Migraine [Unknown]
  - Nightmare [Unknown]
  - Nausea [Unknown]

NARRATIVE: CASE EVENT DATE: 20150505
